FAERS Safety Report 7216011-7 (Version None)
Quarter: 2011Q1

REPORT INFORMATION
  Report Type: 
  Country: None (occurrence: None)
  Receive Date: 20110107
  Receipt Date: 20101228
  Transmission Date: 20110831
  Serious: Yes (Hospitalization)
  Sender: FDA-Public Use
  Company Number: PHHY2010IT89542

PATIENT
  Sex: Male

DRUGS (2)
  1. AMOXICILLIN AND CLAVULANATE POTASSIUM [Concomitant]
  2. KETOPROFEN [Suspect]
     Indication: ANTIINFLAMMATORY THERAPY
     Dosage: 160 MG, QD
     Route: 048
     Dates: start: 20061215, end: 20061215

REACTIONS (1)
  - STEVENS-JOHNSON SYNDROME [None]
